FAERS Safety Report 11434691 (Version 3)
Quarter: 2018Q3

REPORT INFORMATION
  Report Type: Report from Study
  Country: None (occurrence: BR)
  Receive Date: 20150831
  Receipt Date: 20180924
  Transmission Date: 20181010
  Serious: Yes (Hospitalization, Other)
  Sender: FDA-Public Use
  Company Number: BR-ABBVIE-15K-020-1451608-00

PATIENT
  Age: 49 Year
  Sex: Male
  Weight: 81 kg

DRUGS (3)
  1. OMEPRAZOLE. [Concomitant]
     Active Substance: OMEPRAZOLE
     Indication: GASTRIC DISORDER
     Route: 048
     Dates: start: 201501
  2. PREDNISONE. [Concomitant]
     Active Substance: PREDNISONE
     Indication: ENDOCRINE DISORDER
  3. HUMIRA [Suspect]
     Active Substance: ADALIMUMAB
     Indication: ANKYLOSING SPONDYLITIS
     Route: 058
     Dates: start: 20130420

REACTIONS (13)
  - Blood pressure abnormal [Unknown]
  - Blood cholesterol increased [Unknown]
  - Arrhythmia [Recovered/Resolved]
  - Weight increased [Not Recovered/Not Resolved]
  - Hypertension [Unknown]
  - Spinal column injury [Unknown]
  - Blood cholesterol abnormal [Unknown]
  - Weight decreased [Unknown]
  - Left ventricular end-diastolic pressure increased [Unknown]
  - Coronary artery occlusion [Recovered/Resolved]
  - Arrhythmia [Recovering/Resolving]
  - Venous occlusion [Recovered/Resolved]
  - Chest pain [Unknown]

NARRATIVE: CASE EVENT DATE: 201410
